FAERS Safety Report 10268242 (Version 1)
Quarter: 2014Q2

REPORT INFORMATION
  Report Type: Report from Study
  Country: DE (occurrence: DE)
  Receive Date: 20140630
  Receipt Date: 20140630
  Transmission Date: 20141212
  Serious: Yes (Disabling)
  Sender: FDA-Public Use
  Company Number: GXKR2014DE002373

PATIENT
  Age: 66 Year
  Sex: Female

DRUGS (3)
  1. PACLITAXEL [Suspect]
     Dosage: UNK
     Route: 041
  2. GRANISETRON [Concomitant]
     Dosage: UNK
     Dates: start: 20131209
  3. DEXAMETHASONE [Concomitant]

REACTIONS (8)
  - Disturbance in attention [Not Recovered/Not Resolved]
  - Aphasia [Not Recovered/Not Resolved]
  - Fatigue [Not Recovered/Not Resolved]
  - Insomnia [Not Recovered/Not Resolved]
  - Pain in extremity [Not Recovered/Not Resolved]
  - Paraesthesia [Not Recovered/Not Resolved]
  - Oedema peripheral [Not Recovered/Not Resolved]
  - Hypoaesthesia [Not Recovered/Not Resolved]
